FAERS Safety Report 5222658-X (Version None)
Quarter: 2006Q4

REPORT INFORMATION
  Report Type: 
  Country: None (occurrence: None)
  Receive Date: 20061205
  Receipt Date: 20050329
  Transmission Date: 20070319
  Serious: Yes (Hospitalization)
  Sender: FDA-Public Use
  Company Number: 2005UW04937

PATIENT
  Age: 54 Year
  Sex: Female
  Weight: 125.6464 kg

DRUGS (3)
  1. PRILOSEC [Suspect]
     Indication: GASTROOESOPHAGEAL REFLUX DISEASE
     Dates: end: 20040601
  2. PRILOSEC OTC [Suspect]
     Indication: GASTROOESOPHAGEAL REFLUX DISEASE
     Dosage: 1 DF QD PO
     Route: 048
     Dates: start: 20040628, end: 20050327
  3. DIOVAN [Concomitant]

REACTIONS (1)
  - GASTRIC POLYPS [None]
